FAERS Safety Report 23100808 (Version 1)
Quarter: 2023Q4

REPORT INFORMATION
  Report Type: Spontaneous
  Country: US (occurrence: None)
  Receive Date: 20231021
  Receipt Date: 20231021
  Transmission Date: 20240109
  Serious: Yes (Hospitalization)
  Sender: FDA-Public Use
  Company Number: None

PATIENT
  Age: 74 Year
  Sex: Male
  Weight: 105 kg

DRUGS (1)
  1. PRAVASTATIN SODIUM [Suspect]
     Active Substance: PRAVASTATIN SODIUM
     Dosage: FREQUENCY : AT BEDTIME;?
     Route: 048
     Dates: start: 20210622, end: 20221102

REACTIONS (4)
  - Vision blurred [None]
  - Confusional state [None]
  - Visual impairment [None]
  - Visual impairment [None]

NARRATIVE: CASE EVENT DATE: 20230130
